FAERS Safety Report 4710487-2 (Version None)
Quarter: 2005Q3

REPORT INFORMATION
  Report Type: 
  Country: None (occurrence: None)
  Receive Date: 20050707
  Receipt Date: 20050623
  Transmission Date: 20060218
  Serious: Yes (Other)
  Sender: FDA-Public Use
  Company Number: 213999

PATIENT
  Sex: Male

DRUGS (1)
  1. RITUXAN [Suspect]
     Indication: IDIOPATHIC THROMBOCYTOPENIC PURPURA
     Dosage: INTRAVENOUS
     Route: 042
     Dates: start: 20040101, end: 20040101

REACTIONS (4)
  - ARTERIAL THROMBOSIS LIMB [None]
  - GANGRENE [None]
  - PAIN IN EXTREMITY [None]
  - RASH [None]
